FAERS Safety Report 6170849-6 (Version None)
Quarter: 2009Q2

REPORT INFORMATION
  Report Type: 
  Country: None (occurrence: None)
  Receive Date: 20090427
  Receipt Date: 20090414
  Transmission Date: 20091009
  Serious: Yes (Hospitalization)
  Sender: FDA-Public Use
  Company Number: ADE# 09-047DPR

PATIENT
  Age: 57 Year
  Sex: Female

DRUGS (14)
  1. DIGOXIN [Suspect]
     Indication: HEART RATE IRREGULAR
     Dosage: EVERY OTHER DAY; FOR TWO MONTHS
  2. METOPROLOL 100MG [Concomitant]
  3. GLIPIZIDE [Concomitant]
  4. NIFEDIPINE [Concomitant]
  5. PLAVIX [Concomitant]
  6. PENTOXIFYLLINE 400ER [Concomitant]
  7. CALCIUM ACETATE 667MG [Concomitant]
  8. CYMBALTA [Concomitant]
  9. RENAL VITAMIN [Concomitant]
  10. NEXIUM [Concomitant]
  11. TUMS [Concomitant]
  12. REGLAN [Concomitant]
  13. LUNESTA [Concomitant]
  14. VICODIN [Concomitant]

REACTIONS (10)
  - BLOOD POTASSIUM INCREASED [None]
  - BLOOD PRESSURE DECREASED [None]
  - CARDIOACTIVE DRUG LEVEL INCREASED [None]
  - DIALYSIS [None]
  - DIZZINESS POSTURAL [None]
  - FEELING ABNORMAL [None]
  - HAEMORRHAGE [None]
  - HEART RATE DECREASED [None]
  - MALAISE [None]
  - PULSE ABSENT [None]
